FAERS Safety Report 6290570-3 (Version None)
Quarter: 2009Q3

REPORT INFORMATION
  Report Type: 
  Country: None (occurrence: None)
  Receive Date: 20090728
  Receipt Date: 20090728
  Transmission Date: 20100115
  Serious: Yes (Life-Threatening)
  Sender: FDA-Public Use
  Company Number: None

PATIENT
  Age: 89 Year
  Sex: Female
  Weight: 72.5755 kg

DRUGS (1)
  1. NORTRIPTYLINE HCL [Suspect]
     Dosage: 40 MG NIGHTLY PO
     Route: 048
     Dates: start: 20090610, end: 20090629

REACTIONS (6)
  - BRAIN INJURY [None]
  - CONSTIPATION [None]
  - DISORIENTATION [None]
  - DIZZINESS [None]
  - FALL [None]
  - GENERAL PHYSICAL HEALTH DETERIORATION [None]
